FAERS Safety Report 10377756 (Version 1)
Quarter: 2014Q3

REPORT INFORMATION
  Report Type: Report from Study
  Country: BR (occurrence: BR)
  Receive Date: 20140812
  Receipt Date: 20140812
  Transmission Date: 20150326
  Serious: Yes (Other)
  Sender: FDA-Public Use
  Company Number: PHHY2014BR099157

PATIENT
  Age: 69 Year
  Sex: Male

DRUGS (2)
  1. SELOZOK [Suspect]
     Active Substance: METOPROLOL SUCCINATE
     Dosage: UNK UKN, UNK (50 MG) IN THE AFTERNOON
  2. DIOVAN AMLO FIX [Suspect]
     Active Substance: AMLODIPINE\VALSARTAN
     Dosage: UNK 320/5 MG, UNK IN THE MORNING

REACTIONS (2)
  - Gastrointestinal carcinoma [Unknown]
  - Weight decreased [Unknown]
